FAERS Safety Report 8861513 (Version 1)
Quarter: 2012Q4

REPORT INFORMATION
  Report Type: Spontaneous
  Country: US (occurrence: None)
  Receive Date: 20121023
  Receipt Date: 20121023
  Transmission Date: 20130627
  Serious: Yes (Hospitalization, Other)
  Sender: FDA-Public Use
  Company Number: ADR-2012-01914

PATIENT
  Sex: Female

DRUGS (3)
  1. LIORESAL INTRATHECAL (BACLOFEN INJECTION) [Suspect]
  2. LIORESAL INTRATHECAL (BACLOFEN INJECTION) [Suspect]
  3. LIORESAL (BACLOFEN) [Concomitant]

REACTIONS (4)
  - Abdominal distension [None]
  - Drug withdrawal syndrome [None]
  - Feeling abnormal [None]
  - Diplopia [None]
